FAERS Safety Report 10710563 (Version 1)
Quarter: 2015Q1

REPORT INFORMATION
  Report Type: Spontaneous
  Country: US (occurrence: None)
  Receive Date: 20150112
  Receipt Date: 20150112
  Transmission Date: 20150721
  Serious: Yes (Hospitalization)
  Sender: FDA-Public Use
  Company Number: US-H14001-15-00018

PATIENT
  Age: 83 Year
  Sex: Female

DRUGS (3)
  1. CIXUTUMUMAB (CIXUTUMUMAB) UNKNOWN (CIXUTUMUMAB) [Suspect]
     Active Substance: CIXUTUMUMAB
     Indication: SMALL CELL LUNG CANCER
     Dosage: DAY 3 8 AND 15
     Dates: start: 20101215, end: 20110126
  2. CISPLATIN (CISPLATIN) (UNKNOWN) (CISPLATIN) [Suspect]
     Active Substance: CISPLATIN
     Indication: SMALL CELL LUNG CANCER
     Dosage: ON DAY 11
     Route: 042
     Dates: start: 20101215, end: 20110126
  3. ETOPOSIDE (ETOPOSIDE) (UNKNOWN) (ETOPOSIDE) [Suspect]
     Active Substance: ETOPOSIDE
     Indication: SMALL CELL LUNG CANCER
     Dosage: DAYS 1-3
     Dates: start: 20101215, end: 20110128

REACTIONS (8)
  - Urinary tract infection [None]
  - Dehydration [None]
  - Muscular weakness [None]
  - Neutrophil count decreased [None]
  - Fatigue [None]
  - Platelet count decreased [None]
  - Asthenia [None]
  - Haemoglobin decreased [None]

NARRATIVE: CASE EVENT DATE: 20110206
